FAERS Safety Report 7790332-1 (Version None)
Quarter: 2011Q3

REPORT INFORMATION
  Report Type: 
  Country: None (occurrence: None)
  Receive Date: 20110930
  Receipt Date: 20110914
  Transmission Date: 20111222
  Serious: No
  Sender: FDA-Public Use
  Company Number: US-ROXANE LABORATORIES, INC.-2011-RO-01137RO

PATIENT
  Sex: Female
  Weight: 54 kg

DRUGS (7)
  1. GABAPENTIN [Concomitant]
     Dosage: 600 MG
  2. RITUXIMAB [Suspect]
     Indication: LYMPHOMA
  3. CELEBREX [Concomitant]
     Dosage: 200 MG
  4. TREANDA [Suspect]
     Indication: LYMPHOMA
     Route: 042
  5. PREDNISONE [Suspect]
     Indication: LYMPHOMA
     Dosage: 10 MG
     Route: 048
  6. LEVOXYL [Concomitant]
     Dosage: 125 MCG
  7. HYDROCHLOROTHIAZIDE [Concomitant]
     Dosage: 12.5 MG

REACTIONS (1)
  - RASH [None]
